FAERS Safety Report 25254524 (Version 1)
Quarter: 2025Q2

REPORT INFORMATION
  Report Type: Report from Study
  Country: KR (occurrence: KR)
  Receive Date: 20250430
  Receipt Date: 20250430
  Transmission Date: 20250716
  Serious: Yes (Other)
  Sender: ALEXION PHARMACEUTICALS
  Company Number: KR-ASTRAZENECA-202504GLO020517KR

PATIENT
  Weight: 59.7 kg

DRUGS (8)
  1. OLAPARIB [Suspect]
     Active Substance: OLAPARIB
     Indication: Ovarian cancer
  2. OLAPARIB [Suspect]
     Active Substance: OLAPARIB
  3. OLAPARIB [Suspect]
     Active Substance: OLAPARIB
  4. OPSUMIT [Concomitant]
     Active Substance: MACITENTAN
  5. DIGOXIN [Concomitant]
     Active Substance: DIGOXIN
  6. Lipilou [Concomitant]
  7. SILDENAFIL CITRATE [Concomitant]
     Active Substance: SILDENAFIL CITRATE
  8. Epal [Concomitant]

REACTIONS (1)
  - Neuropathy peripheral [Recovering/Resolving]
